FAERS Safety Report 26116743 (Version 1)
Quarter: 2025Q4

REPORT INFORMATION
  Report Type: Spontaneous
  Country: US (occurrence: US)
  Receive Date: 20251203
  Receipt Date: 20251203
  Transmission Date: 20260118
  Serious: Yes (Hospitalization)
  Sender: MYLAN
  Company Number: US-MYLANLABS-2025M1103031

PATIENT
  Age: 45 Year
  Sex: Female

DRUGS (16)
  1. VERAPAMIL [Suspect]
     Active Substance: VERAPAMIL HYDROCHLORIDE
     Indication: Hypoglycaemia
     Dosage: UNK
  2. VERAPAMIL [Suspect]
     Active Substance: VERAPAMIL HYDROCHLORIDE
     Dosage: UNK
     Route: 065
  3. VERAPAMIL [Suspect]
     Active Substance: VERAPAMIL HYDROCHLORIDE
     Dosage: UNK
     Route: 065
  4. VERAPAMIL [Suspect]
     Active Substance: VERAPAMIL HYDROCHLORIDE
     Dosage: UNK
  5. PREDNISONE [Suspect]
     Active Substance: PREDNISONE
     Indication: Hypoglycaemia
     Dosage: UNK
  6. PREDNISONE [Suspect]
     Active Substance: PREDNISONE
     Dosage: UNK
     Route: 065
  7. PREDNISONE [Suspect]
     Active Substance: PREDNISONE
     Dosage: UNK
     Route: 065
  8. PREDNISONE [Suspect]
     Active Substance: PREDNISONE
     Dosage: UNK
  9. DIAZOXIDE [Suspect]
     Active Substance: DIAZOXIDE
     Indication: Hypoglycaemia
     Dosage: UNK
  10. DIAZOXIDE [Suspect]
     Active Substance: DIAZOXIDE
     Dosage: UNK
     Route: 065
  11. DIAZOXIDE [Suspect]
     Active Substance: DIAZOXIDE
     Dosage: UNK
     Route: 065
  12. DIAZOXIDE [Suspect]
     Active Substance: DIAZOXIDE
     Dosage: UNK
  13. LANREOTIDE [Suspect]
     Active Substance: LANREOTIDE
     Indication: Hypoglycaemia
     Dosage: UNK
  14. LANREOTIDE [Suspect]
     Active Substance: LANREOTIDE
     Dosage: UNK
     Route: 065
  15. LANREOTIDE [Suspect]
     Active Substance: LANREOTIDE
     Dosage: UNK
     Route: 065
  16. LANREOTIDE [Suspect]
     Active Substance: LANREOTIDE
     Dosage: UNK

REACTIONS (2)
  - Drug ineffective [Unknown]
  - Product use in unapproved indication [Unknown]
